FAERS Safety Report 4457704-4 (Version None)
Quarter: 2004Q3

REPORT INFORMATION
  Report Type: 
  Country: None (occurrence: None)
  Receive Date: 20040901
  Receipt Date: 20040513
  Transmission Date: 20050211
  Serious: No
  Sender: FDA-Public Use
  Company Number: FROV000196

PATIENT
  Age: 45 Year
  Sex: Female

DRUGS (4)
  1. FROVA [Suspect]
     Indication: MIGRAINE
     Dosage: 2.5 MG ORAL
     Route: 048
     Dates: start: 20040512
  2. TARKA (VERAPAMIL HYDROCHLORIDE) [Concomitant]
  3. PHRENILIN FORTE (BUTALBITAL) [Concomitant]
  4. DEPAKOTE [Concomitant]

REACTIONS (1)
  - MIGRAINE [None]
